FAERS Safety Report 6574743-8 (Version None)
Quarter: 2010Q1

REPORT INFORMATION
  Report Type: 
  Country: None (occurrence: None)
  Receive Date: 20100209
  Receipt Date: 20100201
  Transmission Date: 20100710
  Serious: Yes (Hospitalization, Other)
  Sender: FDA-Public Use
  Company Number: PHHO2007NO19996

PATIENT
  Sex: Male
  Weight: 80 kg

DRUGS (6)
  1. CERTICAN [Suspect]
     Indication: RENAL TRANSPLANT
     Dosage: 0.75 MG, BID
     Route: 048
     Dates: start: 20071017
  2. AEB071 AEB+GELCAP [Suspect]
     Indication: RENAL TRANSPLANT
     Dosage: 300 MG, BID
     Route: 048
     Dates: start: 20071018
  3. PREDNISOLON [Concomitant]
     Dosage: 10 MG, QD
     Route: 048
     Dates: start: 20071017
  4. AMLODIPINE [Concomitant]
  5. SELO-ZOK [Concomitant]
  6. RANITIDINE [Concomitant]

REACTIONS (13)
  - BLOOD CREATININE INCREASED [None]
  - CONCOMITANT DISEASE PROGRESSION [None]
  - HYPERCALCAEMIA [None]
  - HYPERPARATHYROIDISM TERTIARY [None]
  - KLEBSIELLA INFECTION [None]
  - LYMPHOCELE [None]
  - LYMPHOCELE MARSUPIALISATION [None]
  - MUSCLE FATIGUE [None]
  - MUSCULOSKELETAL STIFFNESS [None]
  - OEDEMA PERIPHERAL [None]
  - PAIN IN EXTREMITY [None]
  - PARATHYROIDECTOMY [None]
  - URINARY TRACT INFECTION [None]
